FAERS Safety Report 5191990-0 (Version None)
Quarter: 2006Q4

REPORT INFORMATION
  Report Type: 
  Country: None (occurrence: None)
  Receive Date: 20061220
  Receipt Date: 20061213
  Transmission Date: 20070319
  Serious: Yes (Other)
  Sender: FDA-Public Use
  Company Number: 2006130799

PATIENT
  Age: 72 Year
  Sex: Male
  Weight: 86 kg

DRUGS (5)
  1. ATORVASTATIN CALCIUM [Suspect]
     Indication: CORONARY ARTERY DISEASE
     Dosage: 80 MG (80 MG,1 IN 1 D), ORAL
     Route: 048
     Dates: start: 20060913, end: 20061025
  2. PLAVIX [Suspect]
     Dosage: 80 MG, ORAL
     Route: 048
     Dates: start: 20060808
  3. DIOVAN HCT [Concomitant]
  4. ASPIRIN [Concomitant]
  5. LYRICA [Concomitant]

REACTIONS (2)
  - GAMMA-GLUTAMYLTRANSFERASE INCREASED [None]
  - MALAISE [None]
